FAERS Safety Report 6501674-1 (Version None)
Quarter: 2009Q4

REPORT INFORMATION
  Report Type: 
  Country: None (occurrence: None)
  Receive Date: 20091127
  Receipt Date: 20090109
  Transmission Date: 20100525
  Serious: Yes (Other)
  Sender: FDA-Public Use
  Company Number: WAES 0808USA01433

PATIENT
  Age: 56 Year
  Sex: Female

DRUGS (4)
  1. FOSAMAX [Suspect]
     Indication: OSTEOPENIA
     Dosage: 70 MG/PO
     Route: 048
     Dates: start: 20050101, end: 20070101
  2. FOSAMAX [Suspect]
     Indication: OSTEOPOROSIS
     Dosage: 70 MG/PO
     Route: 048
     Dates: start: 20050101, end: 20070101
  3. BONIVA [Suspect]
     Indication: OSTEOPENIA
     Dates: start: 20070901, end: 20080214
  4. BONIVA [Suspect]
     Indication: OSTEOPOROSIS
     Dates: start: 20070901, end: 20080214

REACTIONS (18)
  - CERUMEN IMPACTION [None]
  - CHEST DISCOMFORT [None]
  - CORONARY ARTERY DISEASE [None]
  - DEHYDRATION [None]
  - EUSTACHIAN TUBE DISORDER [None]
  - FATIGUE [None]
  - HYPOGLYCAEMIA [None]
  - OSTEONECROSIS [None]
  - PAIN [None]
  - PHARYNGITIS [None]
  - POSTNASAL DRIP [None]
  - SINUS DISORDER [None]
  - SINUSITIS [None]
  - SYNCOPE [None]
  - TEMPOROMANDIBULAR JOINT SYNDROME [None]
  - TOOTHACHE [None]
  - TRIGGER FINGER [None]
  - VERTIGO POSITIONAL [None]
